FAERS Safety Report 22172893 (Version 2)
Quarter: 2023Q2

REPORT INFORMATION
  Report Type: Spontaneous
  Country: CA (occurrence: CA)
  Receive Date: 20230404
  Receipt Date: 20230622
  Transmission Date: 20230721
  Serious: Yes (Death, Hospitalization, Other)
  Sender: FDA-Public Use
  Company Number: CA-Covis Pharma Europe B.V.-2023COV00778

PATIENT
  Age: 67 Year
  Sex: Male

DRUGS (8)
  1. ALVESCO [Suspect]
     Active Substance: CICLESONIDE
     Route: 055
  2. FORMOTEROL FUMARATE\MOMETASONE FUROATE [Suspect]
     Active Substance: FORMOTEROL FUMARATE\MOMETASONE FUROATE
     Dosage: 3 EVERY 1 DAYS
     Route: 065
  3. MEPOLIZUMAB [Suspect]
     Active Substance: MEPOLIZUMAB
     Indication: Asthma
     Route: 058
  4. MONTELUKAST SODIUM [Suspect]
     Active Substance: MONTELUKAST SODIUM
  5. PREDNISONE [Suspect]
     Active Substance: PREDNISONE
     Indication: Asthma
     Dosage: 15 MG
  6. PREDNISONE [Suspect]
     Active Substance: PREDNISONE
     Dosage: 50 MG
  7. SPIRIVA [Suspect]
     Active Substance: TIOTROPIUM BROMIDE MONOHYDRATE
  8. VENTOLIN [Suspect]
     Active Substance: ALBUTEROL SULFATE

REACTIONS (3)
  - COVID-19 [Fatal]
  - Death [Fatal]
  - Asthma [Fatal]
